FAERS Safety Report 21768257 (Version 9)
Quarter: 2025Q2

REPORT INFORMATION
  Report Type: Report from Study
  Country: CA (occurrence: CA)
  Receive Date: 20221222
  Receipt Date: 20250430
  Transmission Date: 20250717
  Serious: Yes (Other)
  Sender: BIOCON
  Company Number: CA-MYLANLABS-2022M1116070

PATIENT

DRUGS (6)
  1. HULIO [Suspect]
     Active Substance: ADALIMUMAB-FKJP
     Indication: Crohn^s disease
     Dosage: 40 MILLIGRAM, Q2W
     Route: 058
  2. HULIO [Suspect]
     Active Substance: ADALIMUMAB-FKJP
     Route: 058
     Dates: start: 20221031
  3. HULIO [Suspect]
     Active Substance: ADALIMUMAB-FKJP
     Route: 058
     Dates: start: 20230213
  4. HULIO [Suspect]
     Active Substance: ADALIMUMAB-FKJP
     Dosage: 40 MILLIGRAM, QWEEK
     Route: 058
     Dates: start: 20221102
  5. HULIO [Suspect]
     Active Substance: ADALIMUMAB-FKJP
     Dosage: 40 MILLIGRAM, QWEEK
     Route: 058
     Dates: start: 20221031
  6. HULIO [Suspect]
     Active Substance: ADALIMUMAB-FKJP
     Route: 058
     Dates: start: 20221031

REACTIONS (7)
  - Abdominal abscess [Unknown]
  - C-reactive protein increased [Unknown]
  - Drug level below therapeutic [Unknown]
  - Abscess [Unknown]
  - Inappropriate schedule of product administration [Unknown]
  - Product dose omission issue [Unknown]
  - Off label use [Unknown]

NARRATIVE: CASE EVENT DATE: 20230214
